FAERS Safety Report 7983512-3 (Version None)
Quarter: 2011Q4

REPORT INFORMATION
  Report Type: 
  Country: None (occurrence: None)
  Receive Date: 20111215
  Receipt Date: 20111202
  Transmission Date: 20120403
  Serious: Yes (Death)
  Sender: FDA-Public Use
  Company Number: US-CELGENEUS-163-21880-11091943

PATIENT
  Sex: Male

DRUGS (6)
  1. REVLIMID [Suspect]
     Dosage: 15 MILLIGRAM
     Route: 048
     Dates: start: 20110801
  2. ACETAMINOPHEN AND HYDROCODONE BITARTRATE [Concomitant]
     Dosage: 7.5-500MG
     Route: 065
  3. ADVAIR DISKUS 100/50 [Concomitant]
     Route: 065
  4. REVLIMID [Suspect]
     Indication: MULTIPLE MYELOMA
     Dosage: 25 MILLIGRAM
     Route: 048
     Dates: start: 20110601
  5. POTASSIUM CHLORIDE [Concomitant]
     Dosage: 40 MILLIEQUIVALENTS
     Route: 065
  6. LASIX [Concomitant]
     Dosage: 25 MILLIGRAM
     Route: 065

REACTIONS (1)
  - PLEURAL EFFUSION [None]
